FAERS Safety Report 7346216-6 (Version None)
Quarter: 2011Q1

REPORT INFORMATION
  Report Type: 
  Country: None (occurrence: None)
  Receive Date: 20110311
  Receipt Date: 20110308
  Transmission Date: 20110831
  Serious: No
  Sender: FDA-Public Use
  Company Number: US-PFIZER INC-2011050382

PATIENT
  Sex: Female

DRUGS (4)
  1. SIMVASTATIN [Concomitant]
     Dosage: 20 MG, DAILY
     Dates: start: 20100101
  2. SIMVASTATIN [Concomitant]
     Dosage: 20 MG, TWICE A WEEK
  3. DRONEDARONE [Suspect]
     Indication: ATRIAL FIBRILLATION
     Dosage: 400 MG, 2X/DAY
     Dates: start: 20101101
  4. GABAPENTIN [Suspect]
     Dosage: UNK

REACTIONS (5)
  - FATIGUE [None]
  - SWELLING [None]
  - GAIT DISTURBANCE [None]
  - OCULAR DISCOMFORT [None]
  - LACRIMATION INCREASED [None]
